FAERS Safety Report 9508663 (Version 1)
Quarter: 2013Q1

REPORT INFORMATION
  Report Type: Spontaneous
  Country: US (occurrence: None)
  Receive Date: 20130305
  Receipt Date: 20130305
  Transmission Date: 20140127
  Serious: Yes (Other)
  Sender: FDA-Public Use
  Company Number: 163-21880-12081673

PATIENT
  Age: 67 Year
  Sex: Female
  Weight: 56.7 kg

DRUGS (18)
  1. REVLIMID [Suspect]
     Indication: PLASMA CELL MYELOMA
     Dosage: 7.5 MG, 21 IN 28 D, PO
     Route: 048
     Dates: start: 20100709
  2. ASPIRIN (ACETYLSALICYLIC ACID) (UNKNOWN) (ACETYLSALICYLIC ACID) [Concomitant]
  3. BIOTIN (BIOTIN) (UNKNOWN) [Concomitant]
  4. CALCIUM + D (OS-CAL) (UNKNOWN) [Concomitant]
  5. EPINEPHRINE (EPINEPHRINE) (UNKNOWN) [Concomitant]
  6. FISH OIL (FISH OIL) (UNKNOWN) [Concomitant]
  7. GARLIC (GARLIC) (UNKNOWN) [Concomitant]
  8. LUTEIN (XANTOFYL) (UNKNOWN) [Concomitant]
  9. MAGNESIUM (MAGNESIUM) (UNKNOWN) [Concomitant]
  10. MULTIVITAMINS (MULTIVITAMINS) (UNKNOWN) [Concomitant]
  11. PROAIR (FLUTICASONE PROPIONATE) (UNKNOWN) [Concomitant]
  12. PSYLLIUM (PSYLLIUM) (UNKNOWN) [Concomitant]
  13. SINGULAIR [Concomitant]
  14. TAPAZOLE (THIAMAZOLE) (UNKNOWN) [Concomitant]
  15. VAGIFEM (ESTRADIOL) (UNKNOWN) [Concomitant]
  16. VITAMIN B (VITAMIN B) (UNKNOWN) [Concomitant]
  17. VITAMIN C [Concomitant]
  18. ZYRTEC (CETIRIZINE HYDROCHLORIDE) (UNKNOWN) [Concomitant]

REACTIONS (1)
  - Vitamin D decreased [None]
